FAERS Safety Report 17725590 (Version 3)
Quarter: 2020Q2

REPORT INFORMATION
  Report Type: Report from Study
  Country: US (occurrence: US)
  Receive Date: 20200429
  Receipt Date: 20200625
  Transmission Date: 20200714
  Serious: Yes (Other)
  Sender: FDA-Public Use
  Company Number: US-CELGENEUS-USA-20200406608

PATIENT
  Age: 81 Year
  Sex: Male
  Weight: 84.3 kg

DRUGS (10)
  1. CC-5013 [Suspect]
     Active Substance: LENALIDOMIDE
     Dosage: 20 MILLIGRAM
     Route: 048
     Dates: start: 20170118, end: 20170207
  2. ACETYLSALICYLIC ACID [Concomitant]
     Active Substance: ASPIRIN
     Indication: TRANSIENT ISCHAEMIC ATTACK
     Dosage: 325 MILLIGRAM
     Route: 048
     Dates: start: 20190613
  3. RITUXIMAB. [Suspect]
     Active Substance: RITUXIMAB
     Indication: NON-HODGKIN^S LYMPHOMA UNSPECIFIED HISTOLOGY INDOLENT
     Route: 041
     Dates: start: 20120626
  4. REFRESH [Concomitant]
     Active Substance: UNSPECIFIED INGREDIENT
     Indication: DRY EYE
     Dosage: 1.4-0.6 %
     Route: 047
     Dates: start: 20141031
  5. LACTOBACILLUS ACIDOPHILUS [Concomitant]
     Active Substance: LACTOBACILLUS ACIDOPHILUS
     Indication: PROBIOTIC THERAPY
     Dosage: 1 CAPSULE
     Route: 048
     Dates: start: 20170419
  6. RITUXIMAB. [Suspect]
     Active Substance: RITUXIMAB
     Route: 041
  7. LIPITOR [Concomitant]
     Active Substance: ATORVASTATIN CALCIUM
     Indication: TRANSIENT ISCHAEMIC ATTACK
     Dosage: 40 MILLIGRAM
     Route: 048
     Dates: start: 20190612
  8. CC-5013 [Suspect]
     Active Substance: LENALIDOMIDE
     Indication: NON-HODGKIN^S LYMPHOMA UNSPECIFIED HISTOLOGY INDOLENT
     Dosage: 20 MILLIGRAM
     Route: 048
     Dates: start: 20160217, end: 20160309
  9. ZANAFLEX [Concomitant]
     Active Substance: TIZANIDINE HYDROCHLORIDE
     Indication: MUSCLE SPASMS
     Dosage: 4 MILLIGRAM
     Route: 048
     Dates: start: 20200114
  10. RITUXIMAB. [Suspect]
     Active Substance: RITUXIMAB
     Dosage: 730 MILLIGRAM
     Route: 041
     Dates: start: 20130918, end: 20141210

REACTIONS (1)
  - Malignant melanoma [Recovered/Resolved]

NARRATIVE: CASE EVENT DATE: 20200123
